FAERS Safety Report 24997277 (Version 1)
Quarter: 2025Q1

REPORT INFORMATION
  Report Type: Spontaneous
  Country: US (occurrence: US)
  Receive Date: 20250221
  Receipt Date: 20250221
  Transmission Date: 20250409
  Serious: No
  Sender: SANDOZ
  Company Number: US-SANDOZ-SDZ2025US010993

PATIENT
  Sex: Female

DRUGS (1)
  1. RIVASTIGMINE [Suspect]
     Active Substance: RIVASTIGMINE
     Indication: Parkinson^s disease
     Dosage: 4.6 MG, QD
     Route: 062
     Dates: start: 20250205

REACTIONS (2)
  - Myalgia [Unknown]
  - Arthralgia [Unknown]

NARRATIVE: CASE EVENT DATE: 20250214
